FAERS Safety Report 20791683 (Version 21)
Quarter: 2024Q1

REPORT INFORMATION
  Report Type: Spontaneous
  Country: US (occurrence: US)
  Receive Date: 20220505
  Receipt Date: 20240119
  Transmission Date: 20240410
  Serious: Yes (Disabling)
  Sender: FDA-Public Use
  Company Number: US-PFIZER INC-202200634667

PATIENT
  Age: 55 Year
  Sex: Female
  Weight: 56.698 kg

DRUGS (4)
  1. PREMARIN [Suspect]
     Active Substance: ESTROGENS, CONJUGATED
     Indication: Osteopenia
     Dosage: ONCE A DAY, TAKES IT IN THE EVENING
     Route: 048
  2. PREMARIN [Suspect]
     Active Substance: ESTROGENS, CONJUGATED
     Indication: Hormone therapy
     Dosage: TAKE DAILY FOR 21 DAYS THEN DO NOT TAKE FOR 7 DAYS
     Route: 048
  3. PREMARIN [Suspect]
     Active Substance: ESTROGENS, CONJUGATED
     Dosage: FOR 28 DAYS ON AND 7 DAYS OFF
  4. PREMARIN [Suspect]
     Active Substance: ESTROGENS, CONJUGATED
     Dosage: UNK, DAILY (HAD IT EVERY DAY)

REACTIONS (9)
  - Mood altered [Not Recovered/Not Resolved]
  - Mental disorder [Unknown]
  - Mood swings [Not Recovered/Not Resolved]
  - Anger [Unknown]
  - Crying [Unknown]
  - Intentional product use issue [Unknown]
  - Product prescribing error [Unknown]
  - Off label use [Unknown]
  - Drug effective for unapproved indication [Unknown]

NARRATIVE: CASE EVENT DATE: 20071101
